FAERS Safety Report 24706162 (Version 1)
Quarter: 2024Q4

REPORT INFORMATION
  Report Type: Spontaneous
  Country: IN (occurrence: IN)
  Receive Date: 20241206
  Receipt Date: 20241206
  Transmission Date: 20250115
  Serious: Yes (Hospitalization)
  Sender: OXFORD PHARMACEUTICALS, LLC
  Company Number: IN-Oxford Pharmaceuticals, LLC-2166605

PATIENT
  Age: 65 Year
  Sex: Female

DRUGS (2)
  1. LORAZEPAM [Suspect]
     Active Substance: LORAZEPAM
     Indication: Catatonia
  2. MANNITOL [Concomitant]
     Active Substance: MANNITOL

REACTIONS (1)
  - Drug ineffective [Unknown]
